FAERS Safety Report 9781343 (Version 1)
Quarter: 2013Q4

REPORT INFORMATION
  Report Type: Spontaneous
  Country: US (occurrence: None)
  Receive Date: 20131223
  Receipt Date: 20131223
  Transmission Date: 20140711
  Serious: Yes (Hospitalization)
  Sender: FDA-Public Use
  Company Number: None

PATIENT
  Age: 60 Year
  Sex: Female

DRUGS (2)
  1. RIVAROXABAN [Suspect]
     Dosage: MONTHS
  2. ITRACONAZOLE [Suspect]
     Dosage: DAYS

REACTIONS (1)
  - Gastrointestinal haemorrhage [None]
